FAERS Safety Report 5849600-2 (Version None)
Quarter: 2008Q3

REPORT INFORMATION
  Report Type: 
  Country: None (occurrence: None)
  Receive Date: 20080819
  Receipt Date: 20080808
  Transmission Date: 20090109
  Serious: Yes (Other)
  Sender: FDA-Public Use
  Company Number: US-ROCHE-580093

PATIENT
  Age: 42 Year
  Sex: Female

DRUGS (1)
  1. ACCUTANE [Suspect]
     Dosage: 2ND COURSE OF TREATMENT
     Route: 065

REACTIONS (2)
  - HYSTERECTOMY [None]
  - NODULE [None]
